FAERS Safety Report 14245182 (Version 3)
Quarter: 2018Q1

REPORT INFORMATION
  Report Type: Spontaneous
  Country: US (occurrence: US)
  Receive Date: 20171202
  Receipt Date: 20180131
  Transmission Date: 20180508
  Serious: No
  Sender: FDA-Public Use
  Company Number: PHEH2017US039039

PATIENT
  Sex: Female
  Weight: 77.98 kg

DRUGS (1)
  1. ZOFRAN [Suspect]
     Active Substance: ONDANSETRON HYDROCHLORIDE
     Indication: VOMITING IN PREGNANCY
     Dosage: 08 MG, BID
     Route: 048
     Dates: start: 200204, end: 200312

REACTIONS (5)
  - Depression [Unknown]
  - Emotional distress [Unknown]
  - Injury [Unknown]
  - Maternal exposure during pregnancy [Unknown]
  - Product use in unapproved indication [Unknown]
